FAERS Safety Report 14777239 (Version 2)
Quarter: 2018Q2

REPORT INFORMATION
  Report Type: Spontaneous
  Country: BR (occurrence: BR)
  Receive Date: 20180419
  Receipt Date: 20180423
  Transmission Date: 20180711
  Serious: Yes (Disabling)
  Sender: FDA-Public Use
  Company Number: BR-009507513-1804BRA005180

PATIENT
  Age: 28 Year
  Sex: Female
  Weight: 155 kg

DRUGS (1)
  1. IMPLANON [Suspect]
     Active Substance: ETONOGESTREL
     Indication: CONTRACEPTION
     Dosage: 1 DF, UNK, IN THE LEFT ARM
     Route: 059
     Dates: start: 20180117, end: 20180321

REACTIONS (11)
  - Device difficult to use [Recovered/Resolved]
  - Acne [Recovered/Resolved]
  - Implant site swelling [Recovered/Resolved]
  - Implant site reaction [Unknown]
  - Implant site pain [Recovered/Resolved]
  - Emotional disorder [Recovered/Resolved]
  - Scar [Unknown]
  - Anxiety [Recovered/Resolved]
  - Motor dysfunction [Not Recovered/Not Resolved]
  - Hormone level abnormal [Not Recovered/Not Resolved]
  - Complication of device removal [Recovered/Resolved]

NARRATIVE: CASE EVENT DATE: 2018
